FAERS Safety Report 6986124-3 (Version None)
Quarter: 2010Q3

REPORT INFORMATION
  Report Type: 
  Country: None (occurrence: None)
  Receive Date: 20100910
  Receipt Date: 20100902
  Transmission Date: 20110219
  Serious: Yes (Hospitalization)
  Sender: FDA-Public Use
  Company Number: 2008-04858

PATIENT
  Age: 61 Year
  Sex: Male
  Weight: 84.9 kg

DRUGS (9)
  1. VELCADE [Suspect]
     Indication: MULTIPLE MYELOMA
     Dosage: 2.6 MG, SUBCUTANEOUS
     Route: 058
     Dates: start: 20081128, end: 20081222
  2. DEXAMETHASONE TAB [Suspect]
     Indication: MULTIPLE MYELOMA
  3. ACYCLOVIR [Concomitant]
  4. ONDANSETRON [Concomitant]
  5. ALLOPURINOL [Concomitant]
  6. LISINOPRIL [Concomitant]
  7. BETAXOLOL [Concomitant]
  8. PAMIDRONIC ACID (PAMIDRONIC ACID) [Concomitant]
  9. LOPERAMIDE (LOPERAMIDE) [Concomitant]

REACTIONS (15)
  - ANAEMIA [None]
  - ATRIAL FIBRILLATION [None]
  - AUTONOMIC NEUROPATHY [None]
  - BLOOD CREATININE INCREASED [None]
  - BRONCHITIS CHRONIC [None]
  - DECREASED APPETITE [None]
  - DIARRHOEA [None]
  - DYSPNOEA [None]
  - HERPES ZOSTER [None]
  - LEUKOPENIA [None]
  - NEUTROPENIA [None]
  - ORTHOSTATIC HYPOTENSION [None]
  - SYNCOPE [None]
  - THROMBOCYTOPENIA [None]
  - WEIGHT DECREASED [None]
